FAERS Safety Report 8331917-3 (Version None)
Quarter: 2012Q2

REPORT INFORMATION
  Report Type: 
  Country: None (occurrence: None)
  Receive Date: 20120502
  Receipt Date: 20120420
  Transmission Date: 20120825
  Serious: Yes (Other)
  Sender: FDA-Public Use
  Company Number: CA-ELI_LILLY_AND_COMPANY-CA201203003349

PATIENT
  Age: 61 Year
  Sex: Female

DRUGS (11)
  1. VITAMIN D [Concomitant]
  2. ALPRAZOLAM [Concomitant]
  3. FORTEO [Suspect]
     Indication: OSTEOPOROSIS
     Dosage: 20 UG, QD
     Route: 058
     Dates: start: 20101110, end: 20120306
  4. FORTEO [Suspect]
     Dosage: 20 UG, QD
     Route: 058
     Dates: start: 20120310
  5. NORVASC [Concomitant]
     Dosage: UNK
  6. EZETIMIBE [Concomitant]
  7. MULTI-VITAMIN [Concomitant]
  8. PROBIOTICS [Concomitant]
  9. LOVAZA [Concomitant]
  10. FORTEO [Suspect]
     Dosage: 20 UG, QD
     Route: 058
  11. NEXIUM [Concomitant]
     Dosage: UNK, PRN

REACTIONS (15)
  - PALPITATIONS [None]
  - CONTUSION [None]
  - DRUG DOSE OMISSION [None]
  - CONCUSSION [None]
  - EXCORIATION [None]
  - HEADACHE [None]
  - NAUSEA [None]
  - FALL [None]
  - FEELING ABNORMAL [None]
  - TENDERNESS [None]
  - ACCIDENTAL OVERDOSE [None]
  - PAIN [None]
  - DIZZINESS [None]
  - MEMORY IMPAIRMENT [None]
  - SWELLING FACE [None]
